FAERS Safety Report 18739399 (Version 1)
Quarter: 2021Q1

REPORT INFORMATION
  Report Type: Spontaneous
  Country: US (occurrence: US)
  Receive Date: 20210113
  Receipt Date: 20210113
  Transmission Date: 20210419
  Serious: Yes (Other)
  Sender: FDA-Public Use
  Company Number: None

PATIENT
  Age: 97 Year
  Sex: Male

DRUGS (13)
  1. DIGOXIN. [Concomitant]
     Active Substance: DIGOXIN
  2. TUMS [Concomitant]
     Active Substance: CALCIUM CARBONATE
  3. VITAMIN B12 INJ [Concomitant]
  4. SYNTHROID [Concomitant]
     Active Substance: LEVOTHYROXINE SODIUM
  5. IRON TABLETS [Concomitant]
  6. BAMLANIVIMAB. [Suspect]
     Active Substance: BAMLANIVIMAB
     Indication: SARS-COV-2 TEST POSITIVE
     Dosage: ?          OTHER FREQUENCY:ONCE;?
     Route: 041
  7. ASPIRIN. [Concomitant]
     Active Substance: ASPIRIN
  8. MUCINEX [Concomitant]
     Active Substance: GUAIFENESIN
  9. ONDANSETRON TABS [Concomitant]
  10. PROSCAR [Concomitant]
     Active Substance: FINASTERIDE
  11. OMEPRAZOLE. [Concomitant]
     Active Substance: OMEPRAZOLE
  12. FUROSEMIDE. [Concomitant]
     Active Substance: FUROSEMIDE
  13. CITRUCEL [Concomitant]
     Active Substance: METHYLCELLULOSE (4000 MPA.S)

REACTIONS (2)
  - Infusion related reaction [None]
  - Confusional state [None]

NARRATIVE: CASE EVENT DATE: 20210104
